FAERS Safety Report 15992487 (Version 3)
Quarter: 2019Q1

REPORT INFORMATION
  Report Type: Spontaneous
  Country: RO (occurrence: RO)
  Receive Date: 20190221
  Receipt Date: 20190322
  Transmission Date: 20190418
  Serious: Yes (Hospitalization, Other)
  Sender: FDA-Public Use
  Company Number: RO-PFIZER INC-2019077262

PATIENT
  Age: 74 Year
  Sex: Female

DRUGS (1)
  1. IBRANCE [Suspect]
     Active Substance: PALBOCICLIB
     Indication: BREAST CANCER
     Dosage: 125 MG, CYCLIC (3 WEEKS ON TREATMENT ADMINISTRATION WITH 1 WEEK PAUSE)
     Route: 048
     Dates: start: 201811, end: 20190214

REACTIONS (4)
  - Renal failure [Not Recovered/Not Resolved]
  - Cervix carcinoma [Unknown]
  - Hydronephrosis [Unknown]
  - Second primary malignancy [Unknown]

NARRATIVE: CASE EVENT DATE: 201812
